FAERS Safety Report 4466265-5 (Version None)
Quarter: 2004Q3

REPORT INFORMATION
  Report Type: 
  Country: None (occurrence: None)
  Receive Date: 20040930
  Receipt Date: 20040917
  Transmission Date: 20050211
  Serious: Yes (Hospitalization)
  Sender: FDA-Public Use
  Company Number: 207771

PATIENT
  Age: 9 Year
  Sex: Female
  Weight: 22 kg

DRUGS (1)
  1. MABTHERA (RITUXIMAB) CONC FOR SOLUTION FOR INFUSION [Suspect]
     Indication: LYMPHOPROLIFERATIVE DISORDER
     Dosage: 300 MG, 1/WEEK, INTRAVENOUS
     Route: 042
     Dates: start: 20040408, end: 20040429

REACTIONS (8)
  - CONDITION AGGRAVATED [None]
  - DRUG LEVEL INCREASED [None]
  - HEPATIC SIDEROSIS [None]
  - HEPATITIS [None]
  - HEPATITIS GRANULOMATOUS [None]
  - HEPATITIS VIRAL [None]
  - HEPATOCELLULAR DAMAGE [None]
  - IMMUNOSUPPRESSION [None]
